FAERS Safety Report 7062698-1 (Version None)
Quarter: 2010Q4

REPORT INFORMATION
  Report Type: 
  Country: None (occurrence: None)
  Receive Date: 20101026
  Receipt Date: 20100104
  Transmission Date: 20110411
  Serious: Yes (Other)
  Sender: FDA-Public Use
  Company Number: US-PFIZER INC-2010002140

PATIENT
  Sex: Female

DRUGS (2)
  1. LIPITOR [Suspect]
     Indication: CARDIAC OPERATION
  2. LIPITOR [Suspect]
     Indication: STENT PLACEMENT

REACTIONS (2)
  - MUSCULAR WEAKNESS [None]
  - PRURITUS [None]
